FAERS Safety Report 11597913 (Version 2)
Quarter: 2015Q4

REPORT INFORMATION
  Report Type: Spontaneous
  Country: US (occurrence: US)
  Receive Date: 20151006
  Receipt Date: 20151007
  Transmission Date: 20160304
  Serious: Yes (Hospitalization, Other)
  Sender: FDA-Public Use
  Company Number: US-TEVA-598129USA

PATIENT
  Age: 56 Year
  Sex: Female
  Weight: 56.75 kg

DRUGS (13)
  1. NUVIGIL [Suspect]
     Active Substance: ARMODAFINIL
     Indication: COLON CANCER
  2. MELOXICAM. [Concomitant]
     Active Substance: MELOXICAM
     Indication: INFLAMMATION
  3. DIAZEPAM. [Concomitant]
     Active Substance: DIAZEPAM
  4. NUVIGIL [Suspect]
     Active Substance: ARMODAFINIL
     Indication: CIRCADIAN RHYTHM SLEEP DISORDER
     Route: 065
     Dates: start: 2013
  5. FLEXERIL [Suspect]
     Active Substance: CYCLOBENZAPRINE HYDROCHLORIDE
     Route: 065
  6. ASPIRIN. [Concomitant]
     Active Substance: ASPIRIN
  7. FENTANYL. [Concomitant]
     Active Substance: FENTANYL
  8. SERTRALINE [Concomitant]
     Active Substance: SERTRALINE HYDROCHLORIDE
     Indication: DEPRESSION
  9. RESTASIS [Concomitant]
     Active Substance: CYCLOSPORINE
  10. BUPROPION. [Concomitant]
     Active Substance: BUPROPION
     Indication: DEPRESSION
  11. SUBSYS [Concomitant]
     Active Substance: FENTANYL
     Indication: BREAKTHROUGH PAIN
  12. NUVIGIL [Suspect]
     Active Substance: ARMODAFINIL
     Indication: HEREDITARY SPASTIC PARAPLEGIA
  13. TIZANIDINE. [Concomitant]
     Active Substance: TIZANIDINE
     Indication: NERVOUS SYSTEM DISORDER

REACTIONS (7)
  - Rapid eye movements sleep abnormal [Unknown]
  - Fall [Unknown]
  - Intestinal prolapse [Recovered/Resolved]
  - Sleep disorder [Unknown]
  - Mania [Not Recovered/Not Resolved]
  - Sensory disturbance [Unknown]
  - Muscle spasticity [Unknown]

NARRATIVE: CASE EVENT DATE: 20150925
